FAERS Safety Report 9432837 (Version 1)
Quarter: 2013Q3

REPORT INFORMATION
  Report Type: Spontaneous
  Country: FR (occurrence: None)
  Receive Date: 20130729
  Receipt Date: 20130729
  Transmission Date: 20140515
  Serious: Yes (Other)
  Sender: FDA-Public Use
  Company Number: 2013TP000427

PATIENT
  Age: 90 Year
  Sex: Female

DRUGS (6)
  1. VERSATIS [Suspect]
     Indication: PAIN
     Dosage: 2 PATCH; 1X;TOP
     Route: 061
     Dates: start: 20130604
  2. INSULIN HUMAN [Concomitant]
  3. FUROSEMIDE [Concomitant]
  4. PARIET [Concomitant]
  5. SINTROM [Concomitant]
  6. HEPARIN [Concomitant]

REACTIONS (3)
  - Altered state of consciousness [None]
  - Dysarthria [None]
  - Hypotonia [None]
